FAERS Safety Report 5878147-2 (Version None)
Quarter: 2008Q3

REPORT INFORMATION
  Report Type: 
  Country: None (occurrence: None)
  Receive Date: 20080911
  Receipt Date: 20080905
  Transmission Date: 20090109
  Serious: Yes (Hospitalization)
  Sender: FDA-Public Use
  Company Number: US-ASTRAZENECA-2008UW18414

PATIENT
  Age: 56 Year
  Sex: Female

DRUGS (5)
  1. SYMBICORT [Suspect]
     Indication: ASTHMA
     Dosage: TWO PUFFS TWICE DAILY
     Route: 055
     Dates: start: 20080805
  2. BIOXEN [Concomitant]
     Dates: start: 20080812
  3. XOPENEX [Concomitant]
     Dates: start: 20080812
  4. PREDNISONE TAB [Concomitant]
     Dates: start: 20080812
  5. PREDNISONE TAB [Concomitant]
     Dates: start: 20080831

REACTIONS (7)
  - DYSPNOEA [None]
  - HYPERSENSITIVITY [None]
  - INCREASED UPPER AIRWAY SECRETION [None]
  - LIP SWELLING [None]
  - OEDEMA MOUTH [None]
  - URTICARIA [None]
  - WHEEZING [None]
